FAERS Safety Report 8029025 (Version 7)
Quarter: 2013Q1

REPORT INFORMATION
  Report Type: Spontaneous
  Country: FR (occurrence: FR)
  Receive Date: 20110711
  Receipt Date: 20130213
  Transmission Date: 20140127
  Serious: Yes (Disabling)
  Sender: FDA-Public Use
  Company Number: FR-GLAXOSMITHKLINE-B0661821A

PATIENT
  Age: 47 None
  Sex: Female

DRUGS (4)
  1. DEROXAT [Suspect]
     Indication: PRODUCT USED FOR UNKNOWN INDICATION
     Dosage: 20MG PER DAY
     Route: 048
  2. REBIF [Suspect]
     Indication: MULTIPLE SCLEROSIS
     Dosage: 44MCG THREE TIMES PER WEEK
     Route: 058
     Dates: start: 2002, end: 20100526
  3. LYSANXIA [Suspect]
     Indication: PRODUCT USED FOR UNKNOWN INDICATION
     Route: 048
  4. ALDACTAZINE [Concomitant]
     Route: 065

REACTIONS (4)
  - Pulmonary arterial hypertension [Recovered/Resolved with Sequelae]
  - Cor pulmonale chronic [Recovered/Resolved with Sequelae]
  - Dyspnoea exertional [Recovered/Resolved with Sequelae]
  - Cardiomegaly [Recovering/Resolving]
